FAERS Safety Report 16804823 (Version 1)
Quarter: 2019Q3

REPORT INFORMATION
  Report Type: Spontaneous
  Country: JP (occurrence: JP)
  Receive Date: 20190913
  Receipt Date: 20190913
  Transmission Date: 20191005
  Serious: Yes (Other)
  Sender: FDA-Public Use
  Company Number: JP-BRISTOL-MYERS SQUIBB COMPANY-BMS-2019-087567

PATIENT
  Age: 63 Year
  Sex: Female

DRUGS (2)
  1. RINDERON [BETAMETHASONE SODIUM PHOSPHATE] [Concomitant]
     Active Substance: BETAMETHASONE SODIUM PHOSPHATE
     Indication: PRODUCT USED FOR UNKNOWN INDICATION
     Dosage: UNK, QWK
     Route: 065
  2. KENACORT-A [Suspect]
     Active Substance: TRIAMCINOLONE ACETONIDE
     Indication: PRODUCT USED FOR UNKNOWN INDICATION
     Dosage: UNK, QWK
     Route: 014

REACTIONS (3)
  - Hepatic function abnormal [Unknown]
  - Cushing^s syndrome [Not Recovered/Not Resolved]
  - Dyslipidaemia [Unknown]
